FAERS Safety Report 7372732-7 (Version None)
Quarter: 2011Q1

REPORT INFORMATION
  Report Type: 
  Country: None (occurrence: None)
  Receive Date: 20110324
  Receipt Date: 20110311
  Transmission Date: 20110831
  Serious: Yes (Other)
  Sender: FDA-Public Use
  Company Number: PHHY2011CA20438

PATIENT
  Age: 53 Year
  Sex: Male

DRUGS (2)
  1. LIOTHYRONINE SODIUM [Suspect]
     Dosage: 5 UG, TID
  2. METHIMAZOLE [Suspect]
     Indication: THYROXINE INCREASED
     Dosage: 5 MG, TID

REACTIONS (4)
  - ATRIAL FIBRILLATION [None]
  - TRI-IODOTHYRONINE INCREASED [None]
  - WRONG DRUG ADMINISTERED [None]
  - THYROXINE INCREASED [None]
